FAERS Safety Report 11820145 (Version 1)
Quarter: 2015Q4

REPORT INFORMATION
  Report Type: Spontaneous
  Country: US (occurrence: None)
  Receive Date: 20151209
  Receipt Date: 20151209
  Transmission Date: 20160305
  Serious: No
  Sender: FDA-Public Use
  Company Number: None

PATIENT
  Age: 29 Year
  Sex: Male
  Weight: 97.52 kg

DRUGS (2)
  1. LEXAPRO [Concomitant]
     Active Substance: ESCITALOPRAM OXALATE
  2. MIRVASO [Suspect]
     Active Substance: BRIMONIDINE TARTRATE
     Indication: ROSACEA
     Dosage: TO AFFECTED AREA
     Route: 061
     Dates: start: 20151203, end: 20151207

REACTIONS (4)
  - Irritability [None]
  - Rebound effect [None]
  - Flushing [None]
  - Burning sensation [None]

NARRATIVE: CASE EVENT DATE: 20151208
